FAERS Safety Report 5737192-8 (Version None)
Quarter: 2008Q2

REPORT INFORMATION
  Report Type: 
  Country: None (occurrence: None)
  Receive Date: 20080512
  Receipt Date: 20080512
  Transmission Date: 20081010
  Serious: Yes (Death, Life-Threatening, Hospitalization)
  Sender: FDA-Public Use
  Company Number: None

PATIENT
  Age: 69 Year
  Sex: Male
  Weight: 52.1637 kg

DRUGS (1)
  1. DIGITEK   0.125 MG   MYLAN, PHARMACEUTICALS INC. BERTEK [Suspect]
     Indication: CARDIAC DISORDER
     Dosage: 1 TAB. -PM-  1 TAB.- PM- PO
     Route: 048
     Dates: start: 20071218, end: 20080202

REACTIONS (7)
  - ANOREXIA [None]
  - BODY TEMPERATURE DECREASED [None]
  - CONFUSIONAL STATE [None]
  - DEHYDRATION [None]
  - HYPOTENSION [None]
  - MENTAL STATUS CHANGES [None]
  - RESPIRATORY RATE INCREASED [None]
